FAERS Safety Report 7058537-5 (Version None)
Quarter: 2010Q4

REPORT INFORMATION
  Report Type: 
  Country: None (occurrence: None)
  Receive Date: 20101021
  Receipt Date: 20101021
  Transmission Date: 20110411
  Serious: Yes (Death)
  Sender: FDA-Public Use
  Company Number: None

PATIENT
  Sex: Female
  Weight: 20 kg

DRUGS (16)
  1. LAMPIT (NIFURTIMOX) 120MG BAYER [Suspect]
     Indication: NEUROBLASTOMA
     Dosage: 720MG DAILY DIV TID 047
     Route: 048
     Dates: start: 20100917, end: 20101008
  2. CYCLOPHOSPHAMIDE [Suspect]
     Indication: NEUROBLASTOMA
     Dosage: CTX200MGTOPO 0.6MG CTX TOD1-5 042
     Dates: start: 20100917, end: 20100921
  3. TOPOTECAN [Suspect]
     Indication: NEUROBLASTOMA
     Dosage: CTXTOD1-5 042
     Route: 048
     Dates: start: 20100917, end: 20100921
  4. ZOMETA [Suspect]
     Indication: NEUROBLASTOMA
     Dosage: 3.2MG CTXTOD
     Route: 048
     Dates: start: 20100917, end: 20100921
  5. MORPHINE [Concomitant]
  6. BENADRYL [Concomitant]
  7. ZANTAC [Concomitant]
  8. ZOFRAN [Concomitant]
  9. MS CONTIN [Concomitant]
  10. LACTULOSE [Concomitant]
  11. TORADOL [Concomitant]
  12. VALIUM [Concomitant]
  13. ZYRTEC [Concomitant]
  14. MIRALAX [Concomitant]
  15. NAPHOS [Concomitant]
  16. TYLENOL [Concomitant]

REACTIONS (8)
  - ABDOMINAL PAIN [None]
  - BLOOD COUNT ABNORMAL [None]
  - CONSTIPATION [None]
  - HUNGRY BONE SYNDROME [None]
  - MALIGNANT NEOPLASM PROGRESSION [None]
  - NEUROBLASTOMA [None]
  - RESPIRATORY FAILURE [None]
  - VOMITING [None]
